FAERS Safety Report 8509928-4 (Version None)
Quarter: 2012Q3

REPORT INFORMATION
  Report Type: 
  Country: None (occurrence: None)
  Receive Date: 20120713
  Receipt Date: 20120705
  Transmission Date: 20120928
  Serious: Yes (Death, Hospitalization)
  Sender: FDA-Public Use
  Company Number: US-BAYER-201022704NA

PATIENT
  Age: 72 Year
  Sex: Female

DRUGS (15)
  1. FERROUS SULFATE TAB [Concomitant]
     Dosage: 325 MG (DAILY DOSE), QD,
  2. NEXAVAR [Suspect]
     Indication: HEPATIC NEOPLASM MALIGNANT NON-RESECTABLE
     Dosage: 800 MG (DAILY DOSE), QD, ORAL
     Route: 048
     Dates: start: 20100415, end: 20100425
  3. PENTASA [Concomitant]
     Dosage: 2000 MG (DAILY DOSE), QD,
  4. LACTULOSE [Concomitant]
     Indication: ENCEPHALOPATHY
     Dosage: 4 TEASPOONS
  5. OXYCODONE HCL [Concomitant]
     Dosage: 5 MG (DAILY DOSE), QD,
  6. CALCITRIOL [Concomitant]
     Dosage: .25 ?G (DAILY DOSE), QD,
  7. IMDUR [Concomitant]
     Dosage: 30 MG (DAILY DOSE), QD,
  8. ADVAIR DISKUS 100/50 [Concomitant]
     Dosage: 250/50 DAILY
  9. PROPRANOLOL [Concomitant]
     Dosage: 40 MG (DAILY DOSE), QD,
     Dates: start: 20091124
  10. LEVOTHYROXINE SODIUM [Concomitant]
     Dosage: 100 ?G (DAILY DOSE), QD,
  11. FLUOXETINE HCL [Concomitant]
     Dosage: 10 MG (DAILY DOSE), QD,
  12. LACTULOSE [Concomitant]
     Dosage: 4 TIMES PER DAY
  13. NEXAVAR [Suspect]
     Route: 048
     Dates: end: 20100511
  14. LISINOPRIL [Concomitant]
     Dosage: 5 MG (DAILY DOSE), QD,
     Dates: start: 20091124
  15. ACIPHEX [Concomitant]
     Dosage: 20 MG (DAILY DOSE), QD,

REACTIONS (2)
  - MULTI-ORGAN FAILURE [None]
  - ENCEPHALOPATHY [None]
